FAERS Safety Report 13342618 (Version 1)
Quarter: 2017Q1

REPORT INFORMATION
  Report Type: Spontaneous
  Country: US (occurrence: US)
  Receive Date: 20170316
  Receipt Date: 20170316
  Transmission Date: 20170428
  Serious: No
  Sender: FDA-Public Use
  Company Number: US-SHIRE-US201705683

PATIENT
  Sex: Female
  Weight: 54.88 kg

DRUGS (1)
  1. XIIDRA [Suspect]
     Active Substance: LIFITEGRAST
     Indication: DRY EYE
     Dosage: 1 GTT (OU), 2X/DAY:BID
     Route: 047
     Dates: start: 2017, end: 20170308

REACTIONS (3)
  - Instillation site pain [Recovered/Resolved]
  - Instillation site exfoliation [Recovering/Resolving]
  - Instillation site reaction [Recovering/Resolving]

NARRATIVE: CASE EVENT DATE: 2017
